FAERS Safety Report 4747895-X (Version None)
Quarter: 2005Q3

REPORT INFORMATION
  Report Type: 
  Country: None (occurrence: None)
  Receive Date: 20050817
  Receipt Date: 20050817
  Transmission Date: 20060218
  Serious: No
  Sender: FDA-Public Use
  Company Number: None

PATIENT
  Age: 54 Year
  Sex: Male
  Weight: 118.3888 kg

DRUGS (1)
  1. CIPROFLOXACIN 500 MG RANBAXY PH [Suspect]
     Indication: DIVERTICULITIS
     Dosage: 500 MG TWICE DAILY ORAL
     Route: 048
     Dates: start: 20050813, end: 20050827

REACTIONS (6)
  - AGGRESSION [None]
  - ANXIETY [None]
  - FEELING ABNORMAL [None]
  - HOSTILITY [None]
  - SELF-INJURIOUS IDEATION [None]
  - THINKING ABNORMAL [None]
